FAERS Safety Report 6206048-9 (Version None)
Quarter: 2009Q2

REPORT INFORMATION
  Report Type: 
  Country: None (occurrence: None)
  Receive Date: 20090526
  Receipt Date: 20090512
  Transmission Date: 20091009
  Serious: Yes (Other)
  Sender: FDA-Public Use
  Company Number: 230002L09USA

PATIENT
  Age: 20 Year
  Sex: Female

DRUGS (2)
  1. REBIF [Suspect]
     Indication: MULTIPLE SCLEROSIS
     Dosage: 44 MCG, 3 IN 1 WEEKS, SUBCUTANEOUS
     Route: 058
  2. ORAL CONTRACEPTIVES (ORAL CONTRACPTIVE NOS) [Concomitant]

REACTIONS (6)
  - BLINDNESS TRANSIENT [None]
  - OPTIC ATROPHY [None]
  - PUPILLARY REFLEX IMPAIRED [None]
  - RETINAL EXUDATES [None]
  - RETINOPATHY [None]
  - VISUAL FIELD DEFECT [None]
